FAERS Safety Report 7167066 (Version 6)
Quarter: 2013Q1

REPORT INFORMATION
  Report Type: Spontaneous
  Country: CA (occurrence: CA)
  Receive Date: 20091104
  Receipt Date: 20130129
  Transmission Date: 20140127
  Serious: Yes (Other)
  Sender: FDA-Public Use
  Company Number: PHHY2009CA46145

PATIENT
  Sex: Female

DRUGS (13)
  1. ACLASTA [Suspect]
     Indication: OSTEOPOROSIS
     Dosage: UNK UKN, UNK
     Route: 042
     Dates: start: 20091002
  2. ACLASTA [Suspect]
     Dosage: UNK UKN, UNK
     Route: 042
     Dates: start: 20101027
  3. ACLASTA [Suspect]
     Dosage: UNK UKN, UNK
     Route: 042
     Dates: start: 20120131
  4. ORENCIA [Concomitant]
     Dosage: 500 MG, UNK
     Route: 042
  5. HYDROXYCHLOROQUINE [Concomitant]
     Dosage: 200 MG, BID
  6. PREDNISONE [Concomitant]
     Dosage: 2 MG, QD
  7. ZYTRAM [Concomitant]
  8. CLONAZEPAM [Concomitant]
  9. REMERON [Concomitant]
  10. PROGESTERONE [Concomitant]
  11. LEVOTHYROXINE [Concomitant]
  12. ZOPICLONE [Concomitant]
  13. ESTRADIOL [Concomitant]

REACTIONS (6)
  - Blood thyroid stimulating hormone decreased [Unknown]
  - Mean cell volume abnormal [Unknown]
  - Red cell distribution width increased [Unknown]
  - Platelet count increased [Unknown]
  - Impaired healing [Unknown]
  - Tooth infection [Unknown]
